FAERS Safety Report 10677747 (Version 1)
Quarter: 2014Q4

REPORT INFORMATION
  Report Type: Spontaneous
  Country: US (occurrence: US)
  Receive Date: 20141229
  Receipt Date: 20141229
  Transmission Date: 20150529
  Serious: Yes (Other)
  Sender: FDA-Public Use
  Company Number: US-LUNDBECK-DKLU1106925

PATIENT
  Age: 29 Year

DRUGS (2)
  1. ONFI [Suspect]
     Active Substance: CLOBAZAM
     Indication: LENNOX-GASTAUT SYNDROME
     Route: 065
     Dates: start: 201102
  2. ONFI [Suspect]
     Active Substance: CLOBAZAM
     Route: 065

REACTIONS (10)
  - Dysuria [Unknown]
  - Muscle rigidity [Unknown]
  - Dysphagia [Unknown]
  - Eating disorder [Unknown]
  - Aphasia [Unknown]
  - Crying [Unknown]
  - Abasia [Unknown]
  - Mobility decreased [Unknown]
  - Muscle tightness [Unknown]
  - Poor quality sleep [Unknown]
